FAERS Safety Report 4824088-9 (Version None)
Quarter: 2005Q4

REPORT INFORMATION
  Report Type: 
  Country: None (occurrence: None)
  Receive Date: 20051108
  Receipt Date: 20050921
  Transmission Date: 20060501
  Serious: No
  Sender: FDA-Public Use
  Company Number: 20052565

PATIENT
  Sex: Female

DRUGS (1)
  1. LIORESAL [Suspect]
     Indication: MUSCLE SPASTICITY
     Dosage: 52.47 MCG, DAILY, INTRATHECAL
     Route: 037

REACTIONS (4)
  - DIABETES MELLITUS INADEQUATE CONTROL [None]
  - METABOLIC DISORDER [None]
  - PRURITUS [None]
  - WEIGHT DECREASED [None]
